FAERS Safety Report 11025798 (Version 1)
Quarter: 2015Q2

REPORT INFORMATION
  Report Type: Spontaneous
  Country: US (occurrence: None)
  Receive Date: 20150413
  Receipt Date: 20150413
  Transmission Date: 20150821
  Serious: Yes (Other)
  Sender: FDA-Public Use
  Company Number: None

PATIENT
  Age: 80 Year
  Sex: Male

DRUGS (1)
  1. CABERGOLINE. [Suspect]
     Active Substance: CABERGOLINE
     Indication: DRUG THERAPY
     Dosage: 1 PILL THEN 1/2
     Route: 048

REACTIONS (6)
  - Nerve injury [None]
  - Pain [None]
  - Pain in extremity [None]
  - Ageusia [None]
  - Anosmia [None]
  - Hypoaesthesia [None]
